FAERS Safety Report 24275315 (Version 2)
Quarter: 2024Q3

REPORT INFORMATION
  Report Type: Report from Study
  Country: US (occurrence: US)
  Receive Date: 20240903
  Receipt Date: 20240906
  Transmission Date: 20241017
  Serious: Yes (Death)
  Sender: ABBVIE
  Company Number: US-ABBVIE-5903821

PATIENT
  Age: 85 Year
  Sex: Female
  Weight: 61 kg

DRUGS (1)
  1. SKYRIZI [Suspect]
     Active Substance: RISANKIZUMAB-RZAA
     Indication: Psoriasis
     Dosage: FORM STRENGTH UNITS: 50 MILLIGRAM
     Route: 058
     Dates: start: 20220228

REACTIONS (1)
  - Death [Fatal]

NARRATIVE: CASE EVENT DATE: 20240719
